FAERS Safety Report 16843472 (Version 3)
Quarter: 2019Q4

REPORT INFORMATION
  Report Type: Report from Study
  Country: US (occurrence: US)
  Receive Date: 20190924
  Receipt Date: 20191028
  Transmission Date: 20200122
  Serious: Yes (Hospitalization, Other)
  Sender: FDA-Public Use
  Company Number: PHEH2019US039112

PATIENT
  Sex: Male

DRUGS (1)
  1. ENTRESTO [Suspect]
     Active Substance: SACUBITRIL\VALSARTAN
     Indication: CARDIAC FAILURE
     Route: 048

REACTIONS (6)
  - Atrial fibrillation [Unknown]
  - Dyspnoea [Unknown]
  - Chest pain [Unknown]
  - Frustration tolerance decreased [Unknown]
  - Myocardial infarction [Unknown]
  - Atrioventricular block [Unknown]
